FAERS Safety Report 8379034-0 (Version None)
Quarter: 2012Q2

REPORT INFORMATION
  Report Type: 
  Country: None (occurrence: None)
  Receive Date: 20120522
  Receipt Date: 20120522
  Transmission Date: 20120825
  Serious: Yes (Other)
  Sender: FDA-Public Use
  Company Number: None

PATIENT
  Age: 38 Year
  Sex: Male
  Weight: 77.1115 kg

DRUGS (2)
  1. CIPROFLOXACIN [Suspect]
     Indication: CYSTITIS
     Dosage: 1 500 MG TABLE TWICE DAILY 7 DAYS
     Dates: start: 20120331
  2. CIPROFLOXACIN [Suspect]
     Indication: CYSTITIS
     Dosage: 1 500 MG TABLE TWICE DAILY 7 DAYS
     Dates: start: 20120330

REACTIONS (8)
  - PARAESTHESIA [None]
  - MUSCULAR WEAKNESS [None]
  - INSOMNIA [None]
  - PAIN IN EXTREMITY [None]
  - HEADACHE [None]
  - TREMOR [None]
  - HYPOAESTHESIA [None]
  - DIZZINESS [None]
